FAERS Safety Report 6148659-5 (Version None)
Quarter: 2009Q2

REPORT INFORMATION
  Report Type: 
  Country: None (occurrence: None)
  Receive Date: 20090408
  Receipt Date: 20090327
  Transmission Date: 20091009
  Serious: Yes (Other)
  Sender: FDA-Public Use
  Company Number: CZ-PFIZER INC-2009194931

PATIENT

DRUGS (1)
  1. DOSTINEX [Suspect]
     Dosage: UNK
     Route: 048

REACTIONS (4)
  - DRUG INTERACTION [None]
  - HEADACHE [None]
  - PHOTOPSIA [None]
  - PROLACTINOMA [None]
